FAERS Safety Report 7029524-8 (Version None)
Quarter: 2010Q4

REPORT INFORMATION
  Report Type: 
  Country: None (occurrence: None)
  Receive Date: 20101001
  Receipt Date: 20100921
  Transmission Date: 20110411
  Serious: Yes (Hospitalization)
  Sender: FDA-Public Use
  Company Number: FKO201000401

PATIENT
  Age: 58 Year
  Sex: Male

DRUGS (5)
  1. CYCLOPHOSPHAMIDE [Suspect]
     Indication: NON-HODGKIN'S LYMPHOMA
     Dates: start: 20080101
  2. DOXORUBICIN (MANUFACTURER UNKNOWN) (DOXORUBICIN HYDROCHLORIDE) (DOXORU [Suspect]
     Indication: NON-HODGKIN'S LYMPHOMA
  3. RITUXIMAB (RITUXIMAB) (RITUXIMAB) [Concomitant]
  4. VINCRISTINE [Concomitant]
  5. PREDNISONE (PREDNISONE) (PREDNISONE) [Concomitant]

REACTIONS (3)
  - ASCITES [None]
  - HEPATITIS B [None]
  - HYPERCHOLIA [None]
